FAERS Safety Report 6315277-5 (Version None)
Quarter: 2009Q3

REPORT INFORMATION
  Report Type: 
  Country: None (occurrence: None)
  Receive Date: 20090817
  Receipt Date: 20090805
  Transmission Date: 20100115
  Serious: Yes (Hospitalization, Other)
  Sender: FDA-Public Use
  Company Number: 2009AP003183

PATIENT
  Age: 66 Year
  Sex: Female

DRUGS (4)
  1. FLUOXETINE HCL [Suspect]
     Indication: AGITATION
     Dosage: 20 MG;QD
  2. FLUOXETINE HCL [Suspect]
     Indication: DEPRESSION
     Dosage: 20 MG;QD
  3. FLUOXETINE HCL [Suspect]
     Indication: IRRITABILITY
     Dosage: 20 MG;QD
  4. MIRTAZAPINE [Suspect]
     Dosage: 30 MG; QD

REACTIONS (19)
  - AGGRESSION [None]
  - AGITATION [None]
  - ANTIDEPRESSANT DRUG LEVEL ABOVE THERAPEUTIC [None]
  - BIPOLAR I DISORDER [None]
  - BLOOD CREATININE INCREASED [None]
  - BLOOD UREA ABNORMAL [None]
  - CONDITION AGGRAVATED [None]
  - DELUSION OF GRANDEUR [None]
  - DEPRESSION [None]
  - DRUG INEFFECTIVE [None]
  - DRUG INTERACTION [None]
  - DRUG PRESCRIBING ERROR [None]
  - DYSPHORIA [None]
  - FRUSTRATION [None]
  - GLYCOSYLATED HAEMOGLOBIN INCREASED [None]
  - IRRITABILITY [None]
  - MANIA [None]
  - REFUSAL OF TREATMENT BY PATIENT [None]
  - SELF ESTEEM INFLATED [None]
